FAERS Safety Report 6784117-2 (Version None)
Quarter: 2010Q2

REPORT INFORMATION
  Report Type: 
  Country: None (occurrence: None)
  Receive Date: 20100617
  Receipt Date: 20100609
  Transmission Date: 20101027
  Serious: Yes (Other)
  Sender: FDA-Public Use
  Company Number: 2010AL003450

PATIENT
  Sex: Female

DRUGS (2)
  1. DICLOFENAC SODIUM EXTENDED-RELEASE TABLETS, 100 MG (PUREPAC) (DICLOFEN [Suspect]
  2. CYCLOSPORINE [Concomitant]

REACTIONS (2)
  - GLOMERULAR FILTRATION RATE DECREASED [None]
  - RENAL IMPAIRMENT [None]
